FAERS Safety Report 8812709 (Version 8)
Quarter: 2013Q4

REPORT INFORMATION
  Report Type: Spontaneous
  Country: US (occurrence: US)
  Receive Date: 20120927
  Receipt Date: 20131009
  Transmission Date: 20140711
  Serious: Yes (Death, Life-Threatening, Hospitalization, Disabling, Other)
  Sender: FDA-Public Use
  Company Number: US-009507513-1209USA009368

PATIENT
  Sex: Female
  Weight: 120.18 kg

DRUGS (5)
  1. JANUVIA [Suspect]
     Indication: TYPE 2 DIABETES MELLITUS
     Dosage: 100 MG, QD
     Route: 048
     Dates: start: 20091130, end: 20100723
  2. JANUVIA [Suspect]
     Dosage: 100 MG, QD
     Route: 048
     Dates: start: 20091130, end: 20100126
  3. BYETTA [Suspect]
     Indication: TYPE 2 DIABETES MELLITUS
     Dosage: 10 MICROGRAM, QD
     Dates: start: 20071212, end: 20081218
  4. METFORMIN [Concomitant]
     Indication: TYPE 2 DIABETES MELLITUS
  5. NORVASC [Concomitant]
     Indication: HYPERTENSION

REACTIONS (42)
  - Pancreatic carcinoma [Fatal]
  - Obstruction gastric [Unknown]
  - Emphysematous cholecystitis [Unknown]
  - Dehydration [Unknown]
  - Metastasis [Unknown]
  - Renal failure [Unknown]
  - Pancreatitis [Unknown]
  - Laparoscopy [Unknown]
  - Vision blurred [Unknown]
  - Nephropathy [Unknown]
  - Albuminuria [Unknown]
  - Proteinuria [Unknown]
  - Dyspnoea [Unknown]
  - Fatigue [Unknown]
  - Confusional state [Unknown]
  - Osteoarthritis [Unknown]
  - Pancreatic insufficiency [Unknown]
  - Type 1 diabetes mellitus [Unknown]
  - Diverticulum [Unknown]
  - Diverticulitis [Unknown]
  - Hypoglycaemia [Unknown]
  - Decreased appetite [Not Recovered/Not Resolved]
  - Cachexia [Not Recovered/Not Resolved]
  - Biopsy [Unknown]
  - Mesenteric venous occlusion [Unknown]
  - Jaundice cholestatic [Recovering/Resolving]
  - Hydrocholecystis [Unknown]
  - Radiotherapy to pancreas [Unknown]
  - Cholelithiasis [Unknown]
  - Bile duct stent insertion [Unknown]
  - Oedema peripheral [Unknown]
  - Endoscopic retrograde cholangiopancreatography [Unknown]
  - Radiotherapy [Unknown]
  - Spinal osteoarthritis [Unknown]
  - Hepatic steatosis [Unknown]
  - Arteriosclerosis coronary artery [Unknown]
  - Duodenal stenosis [Unknown]
  - Device occlusion [Unknown]
  - Duodenal obstruction [Unknown]
  - Nausea [Unknown]
  - Vomiting [Unknown]
  - Back pain [Unknown]
